FAERS Safety Report 22266646 (Version 1)
Quarter: 2023Q2

REPORT INFORMATION
  Report Type: Spontaneous
  Country: PL (occurrence: PL)
  Receive Date: 20230428
  Receipt Date: 20230428
  Transmission Date: 20230721
  Serious: Yes (Other)
  Sender: FDA-Public Use
  Company Number: PL-AMGEN-POLSP2023063398

PATIENT
  Age: 70 Year
  Sex: Male

DRUGS (4)
  1. IRINOTECAN [Suspect]
     Active Substance: IRINOTECAN
     Indication: Colorectal cancer
     Dosage: UNK
     Route: 065
     Dates: start: 20210811
  2. LEUCOVORIN [Suspect]
     Active Substance: LEUCOVORIN
     Indication: Colorectal cancer
     Dosage: UNK
     Route: 065
     Dates: start: 20210811
  3. VECTIBIX [Suspect]
     Active Substance: PANITUMUMAB
     Indication: Colorectal cancer
     Dosage: UNK
     Route: 065
     Dates: start: 20210811
  4. FLUOROURACIL [Suspect]
     Active Substance: FLUOROURACIL
     Indication: Colorectal cancer
     Dosage: UNK
     Route: 065
     Dates: start: 20210811

REACTIONS (13)
  - Renal failure [None]
  - Inflammation [None]
  - General physical health deterioration [None]
  - Obstruction [None]
  - Dry skin [None]
  - Quality of life decreased [Recovering/Resolving]
  - Skin lesion [None]
  - Hypomagnesaemia [None]
  - Electrolyte imbalance [None]
  - Decreased appetite [None]
  - Diarrhoea [None]
  - Weight decreased [Recovering/Resolving]
  - Asthenia [None]
